FAERS Safety Report 6156446-7 (Version None)
Quarter: 2009Q2

REPORT INFORMATION
  Report Type: 
  Country: None (occurrence: None)
  Receive Date: 20090413
  Receipt Date: 20090403
  Transmission Date: 20091009
  Serious: Yes (Life-Threatening, Hospitalization)
  Sender: FDA-Public Use
  Company Number: 20096530

PATIENT
  Sex: Female

DRUGS (3)
  1. LIORESAL [Suspect]
     Indication: MUSCLE SPASTICITY
     Dosage: MCG, DAILY, INTRATHECAL
     Route: 037
  2. BUPIVACAINE [Concomitant]
  3. DILAUDID [Concomitant]

REACTIONS (3)
  - CARDIAC ARREST [None]
  - DEVICE MALFUNCTION [None]
  - OVERDOSE [None]
